FAERS Safety Report 17509257 (Version 1)
Quarter: 2020Q1

REPORT INFORMATION
  Report Type: Spontaneous
  Country: US (occurrence: US)
  Receive Date: 20200226
  Receipt Date: 20200226
  Transmission Date: 20200409
  Serious: No
  Sender: FDA-Public Use
  Company Number: None

PATIENT
  Age: 64 Year
  Sex: Female

DRUGS (1)
  1. SIMPONI [Suspect]
     Active Substance: GOLIMUMAB
     Indication: ARTHRITIS
     Dosage: ?          OTHER ROUTE:UNDER THE SKIN?
     Dates: start: 20190813

REACTIONS (2)
  - Eye discharge [None]
  - Dry eye [None]

NARRATIVE: CASE EVENT DATE: 20200218
